FAERS Safety Report 9314048 (Version 1)
Quarter: 2013Q2

REPORT INFORMATION
  Report Type: Spontaneous
  Country: US (occurrence: None)
  Receive Date: 20130524
  Receipt Date: 20130524
  Transmission Date: 20140414
  Serious: Yes (Hospitalization)
  Sender: FDA-Public Use
  Company Number: None

PATIENT
  Age: 64 Year
  Sex: Male
  Weight: 78.8 kg

DRUGS (1)
  1. CARBOPLATIN [Suspect]
     Indication: NEOPLASM MALIGNANT
     Route: 042
     Dates: start: 20130513, end: 20130513

REACTIONS (1)
  - Neutropenia [None]
